FAERS Safety Report 15399791 (Version 1)
Quarter: 2018Q3

REPORT INFORMATION
  Report Type: Spontaneous
  Country: US (occurrence: US)
  Receive Date: 20180913
  Receipt Date: 20180913
  Transmission Date: 20181010
  Serious: Yes (Death)
  Sender: FDA-Public Use
  Company Number: None

PATIENT
  Age: 88 Year
  Sex: Female
  Weight: 47.25 kg

DRUGS (19)
  1. TRAMADOL. [Concomitant]
     Active Substance: TRAMADOL
  2. ESTRACE [Concomitant]
     Active Substance: ESTRADIOL
  3. LEUKERAN [Suspect]
     Active Substance: CHLORAMBUCIL
     Indication: HODGKIN^S DISEASE
     Route: 048
  4. MULTIVITAMIN [Concomitant]
     Active Substance: VITAMINS
  5. BREO ELLIPTA [Concomitant]
     Active Substance: FLUTICASONE FUROATE\VILANTEROL TRIFENATATE
  6. BIOTIN 5000 [Concomitant]
  7. MAGNESIUM [Concomitant]
     Active Substance: MAGNESIUM
  8. CETIRAZINE [Concomitant]
  9. MIRTAZAPINE. [Concomitant]
     Active Substance: MIRTAZAPINE
  10. VITAMIN D [Concomitant]
     Active Substance: CHOLECALCIFEROL
  11. NAPROXEN. [Concomitant]
     Active Substance: NAPROXEN
  12. CALCIUM 600+D [Concomitant]
     Active Substance: CALCIUM\VITAMIN D
  13. PANTOPRAZOLE [Concomitant]
     Active Substance: PANTOPRAZOLE
  14. SF (SODIUM FLUORIDE) [Concomitant]
     Active Substance: SODIUM FLUORIDE
  15. VENTOLIN [Concomitant]
     Active Substance: ALBUTEROL SULFATE
  16. SENNA [Concomitant]
     Active Substance: SENNA LEAF\SENNOSIDES\SENNOSIDES A AND B
  17. MIRALAX [Concomitant]
     Active Substance: POLYETHYLENE GLYCOL 3350
  18. B COMPLETE [Concomitant]
  19. VITAMIN B1 [Concomitant]
     Active Substance: THIAMINE HYDROCHLORIDE

REACTIONS (1)
  - Disease progression [None]

NARRATIVE: CASE EVENT DATE: 20180912
